FAERS Safety Report 9373917 (Version 5)
Quarter: 2013Q4

REPORT INFORMATION
  Report Type: Report from Study
  Country: IN (occurrence: IN)
  Receive Date: 20130628
  Receipt Date: 20131203
  Transmission Date: 20140711
  Serious: Yes (Other)
  Sender: FDA-Public Use
  Company Number: IN-ROCHE-1239482

PATIENT
  Age: 35 Year
  Sex: Female

DRUGS (2)
  1. EXXURA [Suspect]
     Indication: HEPATITIS C
     Dosage: SHE HAS RECEIVED 4 INJECTIONJS OF THERAPY
     Route: 058
     Dates: start: 20130608
  2. COPEGUS [Suspect]
     Indication: HEPATITIS C
     Dosage: 3-2  DAILY;
     Route: 048
     Dates: start: 20130608

REACTIONS (7)
  - Urine output decreased [Recovered/Resolved]
  - Asthenia [Not Recovered/Not Resolved]
  - Anaemia [Not Recovered/Not Resolved]
  - Hypotension [Recovered/Resolved]
  - Anxiety [Recovered/Resolved]
  - Full blood count decreased [Not Recovered/Not Resolved]
  - Platelet count decreased [Unknown]
